FAERS Safety Report 9588513 (Version 1)
Quarter: 2013Q4

REPORT INFORMATION
  Report Type: Spontaneous
  Country: US (occurrence: US)
  Receive Date: 20131003
  Receipt Date: 20131003
  Transmission Date: 20140711
  Serious: No
  Sender: FDA-Public Use
  Company Number: US-AMGEN-USASP2012064683

PATIENT
  Sex: Female
  Weight: 49.89 kg

DRUGS (11)
  1. ENBREL [Suspect]
     Indication: PRODUCT USED FOR UNKNOWN INDICATION
     Dosage: 50 MG, QWK
     Route: 058
  2. DEXAMETHASON                       /00016001/ [Concomitant]
     Dosage: 1 MG, UNK
  3. METHOTREXATE [Concomitant]
     Dosage: 2.5 MG, UNK
  4. LORATADINE [Concomitant]
     Dosage: 10 MG, UNK
  5. BENTYL [Concomitant]
     Dosage: 20 MG, UNK
  6. GLUCOPHAGE [Concomitant]
     Dosage: 850 MG, UNK
  7. GLYBURIDE [Concomitant]
     Dosage: 5 MG, UNK
  8. IBUPROFEN [Concomitant]
     Dosage: 200 MG, UNK
  9. FOLIC ACID [Concomitant]
     Dosage: 1 MG, UNK
  10. PRILOSEC                           /00661201/ [Concomitant]
     Dosage: 10 MG, UNK
  11. MULTIVITAMINS, PLAIN [Concomitant]

REACTIONS (4)
  - Diarrhoea [Recovered/Resolved]
  - Vomiting [Recovered/Resolved]
  - Pyrexia [Recovered/Resolved]
  - Injection site reaction [Unknown]
